FAERS Safety Report 23513390 (Version 1)
Quarter: 2024Q1

REPORT INFORMATION
  Report Type: Spontaneous
  Country: US (occurrence: None)
  Receive Date: 20240210
  Receipt Date: 20240210
  Transmission Date: 20240410
  Serious: Yes (Death)
  Sender: FDA-Public Use
  Company Number: None

PATIENT
  Age: 83 Year
  Sex: Male

DRUGS (1)
  1. LENALIDOMIDE [Suspect]
     Active Substance: LENALIDOMIDE
     Indication: Mantle cell lymphoma
     Dosage: 5 MG QD ORAL
     Route: 048
     Dates: start: 20231121, end: 20240117

REACTIONS (10)
  - Leukocytosis [None]
  - Mental status changes [None]
  - Pleural effusion [None]
  - Gastrointestinal haemorrhage [None]
  - Renal failure [None]
  - Tumour lysis syndrome [None]
  - Sepsis [None]
  - Hypovolaemic shock [None]
  - Respiratory arrest [None]
  - Cardiac arrest [None]

NARRATIVE: CASE EVENT DATE: 20240117
